FAERS Safety Report 4414990-4 (Version None)
Quarter: 2004Q3

REPORT INFORMATION
  Report Type: 
  Country: None (occurrence: None)
  Receive Date: 20040723
  Receipt Date: 20040712
  Transmission Date: 20050211
  Serious: Yes (Hospitalization)
  Sender: FDA-Public Use
  Company Number: 200410199BBE

PATIENT
  Age: 3 Year
  Sex: Male

DRUGS (2)
  1. IMMUNE GLOBULIN INTRAVENOUS (HUMAN) [Suspect]
     Indication: KAWASAKI'S DISEASE
     Dosage: 2000 MG/KG
  2. ASPIRIN [Concomitant]

REACTIONS (3)
  - CEREBRAL INFARCTION [None]
  - COMPUTERISED TOMOGRAM ABNORMAL [None]
  - HYPERREFLEXIA [None]
